FAERS Safety Report 7040546-3 (Version None)
Quarter: 2010Q4

REPORT INFORMATION
  Report Type: 
  Country: None (occurrence: None)
  Receive Date: 20101006
  Receipt Date: 20100920
  Transmission Date: 20110411
  Serious: Yes (Other)
  Sender: FDA-Public Use
  Company Number: 2010P1001532

PATIENT
  Age: 86 Year
  Sex: Male

DRUGS (14)
  1. PHENYTOIN ORAL SUSPENSION USP 125 MG/ML (NO PREF. NAME) [Suspect]
     Dosage: 100 MG;QID;PO, 500 MG;QID;PO, 100 MG;QID;PO
     Route: 048
     Dates: end: 20100905
  2. PHENYTOIN ORAL SUSPENSION USP 125 MG/ML (NO PREF. NAME) [Suspect]
     Dosage: 100 MG;QID;PO, 500 MG;QID;PO, 100 MG;QID;PO
     Route: 048
     Dates: start: 20100905, end: 20100920
  3. PHENYTOIN ORAL SUSPENSION USP 125 MG/ML (NO PREF. NAME) [Suspect]
     Dosage: 100 MG;QID;PO, 500 MG;QID;PO, 100 MG;QID;PO
     Route: 048
     Dates: start: 20100922
  4. TRAMADOL [Concomitant]
  5. ATIVAN [Concomitant]
  6. TEMAZEPAM [Concomitant]
  7. ACETAMINOPHEN [Concomitant]
  8. TRAVATAN [Concomitant]
  9. LOPRESSOR [Concomitant]
  10. EXELON [Concomitant]
  11. CYMBALTA [Concomitant]
  12. AVODART [Concomitant]
  13. NAMENDA [Concomitant]
  14. DIGOXIN [Concomitant]

REACTIONS (4)
  - ANTICONVULSANT DRUG LEVEL INCREASED [None]
  - DRUG DISPENSING ERROR [None]
  - INCORRECT DOSE ADMINISTERED [None]
  - SOMNOLENCE [None]
